FAERS Safety Report 18093151 (Version 2)
Quarter: 2021Q2

REPORT INFORMATION
  Report Type: Spontaneous
  Country: US (occurrence: US)
  Receive Date: 20200730
  Receipt Date: 20210625
  Transmission Date: 20210717
  Serious: Yes (Death, Other)
  Sender: FDA-Public Use
  Company Number: US-GLAXOSMITHKLINE-US2020146546

PATIENT
  Sex: Female

DRUGS (7)
  1. RANITIDINE HYDROCHLORIDE. [Suspect]
     Active Substance: RANITIDINE HYDROCHLORIDE
     Indication: CHOLECYSTECTOMY
     Dosage: 75 MG, QD
     Route: 065
     Dates: start: 199606, end: 200909
  2. RANITIDINE. [Suspect]
     Active Substance: RANITIDINE
  3. RANITIDINE. [Suspect]
     Active Substance: RANITIDINE
     Indication: CHOLECYSTECTOMY
     Dosage: 75 MG, QD
     Route: 065
     Dates: start: 199606, end: 200909
  4. ZANTAC [Suspect]
     Active Substance: RANITIDINE HYDROCHLORIDE
  5. ZANTAC [Suspect]
     Active Substance: RANITIDINE HYDROCHLORIDE
     Indication: CHOLECYSTECTOMY
     Dosage: 75 MG, QD
     Route: 065
     Dates: start: 199606, end: 200909
  6. ZANTAC [Suspect]
     Active Substance: RANITIDINE HYDROCHLORIDE
     Indication: CHOLECYSTECTOMY
     Dosage: 75 MG, QD
     Route: 065
     Dates: start: 199606, end: 200909
  7. RANITIDINE. [Suspect]
     Active Substance: RANITIDINE
     Indication: CHOLECYSTECTOMY
     Dosage: 75 MG, QD
     Route: 065
     Dates: start: 199606, end: 200909

REACTIONS (1)
  - Breast cancer [Fatal]
